FAERS Safety Report 9563209 (Version 1)
Quarter: 2013Q3

REPORT INFORMATION
  Report Type: Spontaneous
  Country: US (occurrence: US)
  Receive Date: 20130927
  Receipt Date: 20130927
  Transmission Date: 20140515
  Serious: Yes (Other)
  Sender: FDA-Public Use
  Company Number: US-BRISTOL-MYERS SQUIBB COMPANY-19029099

PATIENT
  Age: 76 Year
  Sex: Female
  Weight: 59.86 kg

DRUGS (6)
  1. ONGLYZA TABS 5 MG [Suspect]
     Indication: TYPE 2 DIABETES MELLITUS
     Dosage: RECENT DOSE: 18JUN2013
     Dates: start: 2011
  2. LOSARTAN [Concomitant]
  3. DETROL LA [Concomitant]
  4. DEXLANSOPRAZOLE [Concomitant]
     Dosage: DEXILANT
  5. SYNTHROID [Concomitant]
     Dosage: 1DF:0.625 UNITS NOS
  6. LIPITOR [Concomitant]

REACTIONS (1)
  - Urinary tract infection [Unknown]
